FAERS Safety Report 5564150-9 (Version None)
Quarter: 2007Q4

REPORT INFORMATION
  Report Type: 
  Country: None (occurrence: None)
  Receive Date: 20071217
  Receipt Date: 20071206
  Transmission Date: 20080405
  Serious: Yes (Other)
  Sender: FDA-Public Use
  Company Number: BR-PFIZER INC-2007103978

PATIENT
  Sex: Female
  Weight: 70 kg

DRUGS (3)
  1. DEPO-PROVERA SUSPENSION/INJ [Suspect]
     Indication: CONTRACEPTION
     Route: 030
     Dates: start: 20050101, end: 20050101
  2. DEPO-PROVERA SUSPENSION/INJ [Suspect]
     Route: 030
     Dates: start: 20070401, end: 20070401
  3. GESTODENE [Suspect]
     Route: 048
     Dates: start: 20071201, end: 20071202

REACTIONS (5)
  - AMENORRHOEA [None]
  - ASTHENIA [None]
  - COLD SWEAT [None]
  - UTERINE HAEMATOMA [None]
  - WEIGHT INCREASED [None]
